FAERS Safety Report 9170230 (Version 5)
Quarter: 2013Q2

REPORT INFORMATION
  Report Type: Spontaneous
  Country: US (occurrence: None)
  Receive Date: 20130311
  Receipt Date: 20130528
  Transmission Date: 20140414
  Serious: Yes (Disabling)
  Sender: FDA-Public Use
  Company Number: 2013-0947

PATIENT
  Age: 65 Year
  Sex: Female

DRUGS (1)
  1. DYSPORT (BOTULINUM TOXIN TYPE A) (BOTULINUM TOXIN TYPE A) [Suspect]
     Indication: TORTICOLLIS
     Dosage: 300 UNITS (300 UNITS, 1 IN 1 CYCLE(S)), INTRAMUSCULAR
     Route: 030
     Dates: start: 20130204, end: 20130204

REACTIONS (14)
  - Fall [None]
  - Joint injury [None]
  - Nausea [None]
  - Heart rate increased [None]
  - Nasal congestion [None]
  - Rhinorrhoea [None]
  - Sensation of heaviness [None]
  - Malaise [None]
  - Neck pain [None]
  - Musculoskeletal pain [None]
  - Headache [None]
  - Asthenia [None]
  - Dizziness [None]
  - Dyspnoea [None]
